FAERS Safety Report 7700419-7 (Version None)
Quarter: 2011Q3

REPORT INFORMATION
  Report Type: 
  Country: None (occurrence: None)
  Receive Date: 20110822
  Receipt Date: 20110809
  Transmission Date: 20111222
  Serious: Yes (Hospitalization)
  Sender: FDA-Public Use
  Company Number: US-ELI_LILLY_AND_COMPANY-US201107001447

PATIENT
  Sex: Male

DRUGS (6)
  1. CIALIS [Suspect]
     Indication: ERECTILE DYSFUNCTION
     Dosage: 5 MG, SINGLE
     Dates: start: 20110630
  2. PRIMACOR [Concomitant]
  3. SIMAVASTATIN [Concomitant]
  4. ASPIRIN [Concomitant]
  5. METOPROLOL SUCCINATE [Concomitant]
  6. LISINOPRIL [Concomitant]

REACTIONS (6)
  - ARTERIAL OCCLUSIVE DISEASE [None]
  - HYPOAESTHESIA [None]
  - BACK PAIN [None]
  - HEART VALVE REPLACEMENT [None]
  - PAIN IN EXTREMITY [None]
  - ARTHRALGIA [None]
